FAERS Safety Report 15266273 (Version 2)
Quarter: 2018Q3

REPORT INFORMATION
  Report Type: Spontaneous
  Country: CH (occurrence: CH)
  Receive Date: 20180810
  Receipt Date: 20180814
  Transmission Date: 20181010
  Serious: Yes (Death, Other)
  Sender: FDA-Public Use
  Company Number: CH-PFIZER INC-2018008723

PATIENT
  Age: 57 Year
  Sex: Female

DRUGS (2)
  1. LETROZOL [Suspect]
     Active Substance: LETROZOLE
     Indication: BREAST CANCER METASTATIC
     Dosage: UNK
  2. IBRANCE [Suspect]
     Active Substance: PALBOCICLIB
     Indication: BREAST CANCER METASTATIC
     Dosage: 100 MG, UNK

REACTIONS (3)
  - Neoplasm progression [Unknown]
  - Leukopenia [Unknown]
  - Completed suicide [Fatal]

NARRATIVE: CASE EVENT DATE: 20180703
